FAERS Safety Report 8291158 (Version 8)
Quarter: 2014Q4

REPORT INFORMATION
  Report Type: Report from Study
  Country: HK (occurrence: HK)
  Receive Date: 20111214
  Receipt Date: 20141113
  Transmission Date: 20150529
  Serious: Yes (Hospitalization)
  Sender: FDA-Public Use
  Company Number: HK-ROCHE-781088

PATIENT
  Age: 48 Year
  Sex: Female
  Weight: 65.8 kg

DRUGS (16)
  1. MAXOLON [Concomitant]
     Active Substance: METOCLOPRAMIDE HYDROCHLORIDE
     Route: 065
     Dates: start: 20110715, end: 20110715
  2. MEFENAMIC ACID. [Concomitant]
     Active Substance: MEFENAMIC ACID
  3. PEPCIDINE [Concomitant]
     Active Substance: FAMOTIDINE
     Route: 065
     Dates: start: 20110715, end: 20110716
  4. BEVACIZUMAB [Suspect]
     Active Substance: BEVACIZUMAB
     Indication: OVARIAN CANCER
     Dosage: DATE OF LAST DOSE PRIOR TO SAE-24/MAY/2011
     Route: 042
     Dates: start: 20110524, end: 20110613
  5. PACLITAXEL. [Suspect]
     Active Substance: PACLITAXEL
     Route: 042
     Dates: start: 20110621, end: 20111201
  6. BEVACIZUMAB [Suspect]
     Active Substance: BEVACIZUMAB
     Route: 042
     Dates: start: 20110621, end: 20111201
  7. PACLITAXEL. [Suspect]
     Active Substance: PACLITAXEL
     Indication: OVARIAN CANCER
     Dosage: FORM: INFUSION, LAST DATE PRIOR TO SAE:24/MAY/2011
     Route: 042
     Dates: start: 20110524, end: 20110613
  8. LEVOFLOXACIN. [Concomitant]
     Active Substance: LEVOFLOXACIN
     Route: 065
     Dates: start: 20110715, end: 20110723
  9. LAMIVUDINE. [Concomitant]
     Active Substance: LAMIVUDINE
     Route: 065
     Dates: start: 20110523, end: 20130518
  10. CARBOPLATIN. [Suspect]
     Active Substance: CARBOPLATIN
     Indication: OVARIAN CANCER
     Dosage: LAST DATE PRIOR TO SAE:24/MAY/2011 DOSE 6 AUC
     Route: 042
     Dates: start: 20110524, end: 20110613
  11. GASTROCAINE [Concomitant]
  12. CIMETIDINE [Concomitant]
     Active Substance: CIMETIDINE
  13. CHLOORHEXIDINEDIGLUCONAAT [Concomitant]
     Dosage: DOSE: 2 APP
     Route: 065
  14. PHENSEDYL (CODEINE PHOSPHATE/EPHEDRINE HYDROCHLORIDE/PROMETHAZINE HYDR [Concomitant]
     Route: 065
     Dates: start: 20110703, end: 20110706
  15. DICLOFENAC [Concomitant]
     Active Substance: DICLOFENAC
  16. CARBOPLATIN. [Suspect]
     Active Substance: CARBOPLATIN
     Route: 042
     Dates: start: 20110621, end: 20111201

REACTIONS (6)
  - Infection [Recovered/Resolved]
  - Presyncope [Recovered/Resolved]
  - Pyrexia [Recovered/Resolved]
  - Syncope [Recovered/Resolved]
  - Pulmonary tuberculosis [Recovered/Resolved]
  - Urinary tract infection [Recovered/Resolved]

NARRATIVE: CASE EVENT DATE: 20110604
